FAERS Safety Report 4982027-4 (Version None)
Quarter: 2006Q2

REPORT INFORMATION
  Report Type: 
  Country: None (occurrence: None)
  Receive Date: 20060424
  Receipt Date: 20060424
  Transmission Date: 20061013
  Serious: Yes (Other)
  Sender: FDA-Public Use
  Company Number: None

PATIENT
  Sex: Female
  Weight: 8.6183 kg

DRUGS (1)
  1. ZYRTEC [Suspect]
     Indication: HYPERSENSITIVITY
     Dosage: 1/2 TEASPOON    ONCE DAILY   PO
     Route: 048
     Dates: start: 20060420, end: 20060423

REACTIONS (6)
  - ABNORMAL BEHAVIOUR [None]
  - AGGRESSION [None]
  - CRYING [None]
  - GASTRIC DISORDER [None]
  - MOOD SWINGS [None]
  - ORAL INTAKE REDUCED [None]
